FAERS Safety Report 10448749 (Version 1)
Quarter: 2014Q3

REPORT INFORMATION
  Report Type: Report from Study
  Country: US (occurrence: US)
  Receive Date: 20140912
  Receipt Date: 20140912
  Transmission Date: 20150326
  Serious: Yes (Other)
  Sender: FDA-Public Use
  Company Number: US-ROCHE-1410045

PATIENT
  Sex: Male

DRUGS (16)
  1. CARVEDILOL. [Suspect]
     Active Substance: CARVEDILOL
     Indication: PRODUCT USED FOR UNKNOWN INDICATION
     Route: 048
  2. DIOVAN [Concomitant]
     Active Substance: VALSARTAN
     Route: 048
  3. NUTROPIN AQ [Suspect]
     Active Substance: SOMATROPIN
     Indication: HYPOPITUITARISM
     Route: 058
  4. ACTOPLUS MET [Concomitant]
     Active Substance: METFORMIN HYDROCHLORIDE\PIOGLITAZONE HYDROCHLORIDE
     Dosage: 15-850 MG
     Route: 048
  5. FLEXERIL [Concomitant]
     Active Substance: CYCLOBENZAPRINE HYDROCHLORIDE
     Route: 065
  6. VITAMIN D3 [Concomitant]
     Active Substance: CHOLECALCIFEROL
     Dosage: 2,000 UNIT
     Route: 048
  7. PREDNISONE. [Concomitant]
     Active Substance: PREDNISONE
     Route: 065
  8. FERGON (UNITED STATES) [Concomitant]
     Route: 048
  9. NUTROPIN AQ [Suspect]
     Active Substance: SOMATROPIN
     Route: 058
  10. ACETAMIN [Concomitant]
     Route: 048
  11. TRAMADOL [Concomitant]
     Active Substance: TRAMADOL
     Route: 065
  12. COZAAR [Concomitant]
     Active Substance: LOSARTAN POTASSIUM
     Route: 048
  13. OMEPRAZOLE. [Concomitant]
     Active Substance: OMEPRAZOLE
     Route: 048
  14. LEVOTHYROXINE [Concomitant]
     Active Substance: LEVOTHYROXINE
     Dosage: 150 MCG
     Route: 048
  15. VITAMIN B12 [Concomitant]
     Active Substance: CYANOCOBALAMIN
     Dosage: 1,000 MCG
     Route: 048
  16. ANDROGEL [Concomitant]
     Active Substance: TESTOSTERONE
     Dosage: 20.25 MG/1.25 GRAMS IN METERED DOSE PUMP
     Route: 065

REACTIONS (11)
  - Fatigue [Unknown]
  - Dry skin [Unknown]
  - Osteoporosis [Unknown]
  - Temperature intolerance [Unknown]
  - Erectile dysfunction [Unknown]
  - Urinary incontinence [Unknown]
  - Muscular weakness [Unknown]
  - Dyspepsia [Unknown]
  - Deafness [Unknown]
  - Anosmia [Unknown]
  - Hyperhidrosis [Unknown]
